FAERS Safety Report 9123482 (Version 2)
Quarter: 2013Q1

REPORT INFORMATION
  Report Type: Spontaneous
  Country: US (occurrence: US)
  Receive Date: 20130227
  Receipt Date: 20130301
  Transmission Date: 20140127
  Serious: Yes (Other)
  Sender: FDA-Public Use
  Company Number: PHEH2013US004633

PATIENT
  Sex: Female

DRUGS (4)
  1. DIOVAN [Suspect]
     Dosage: 80 MG, QD
     Route: 048
  2. DICLOFENAC SODIUM [Concomitant]
     Dosage: 75 MG, BID
  3. CRESTOR [Concomitant]
     Dosage: 10 MG, QD
  4. IBUPROFEN [Concomitant]
     Dosage: 60 MG, TID

REACTIONS (3)
  - Fall [Unknown]
  - Rotator cuff syndrome [Unknown]
  - Muscle injury [Unknown]
